FAERS Safety Report 7200926-X (Version None)
Quarter: 2010Q4

REPORT INFORMATION
  Report Type: 
  Country: None (occurrence: None)
  Receive Date: 20101228
  Receipt Date: 20101220
  Transmission Date: 20110411
  Serious: Yes (Hospitalization)
  Sender: FDA-Public Use
  Company Number: US-AMGEN-USASP2010009992

PATIENT

DRUGS (2)
  1. ENBREL [Suspect]
     Indication: RHEUMATOID ARTHRITIS
     Dates: start: 20070514
  2. ENBREL [Suspect]

REACTIONS (5)
  - ASTHMA [None]
  - CHRONIC OBSTRUCTIVE PULMONARY DISEASE [None]
  - GINGIVITIS [None]
  - PNEUMONIA [None]
  - RHEUMATOID ARTHRITIS [None]
